FAERS Safety Report 8050200-7 (Version None)
Quarter: 2012Q1

REPORT INFORMATION
  Report Type: 
  Country: None (occurrence: None)
  Receive Date: 20120117
  Receipt Date: 20120109
  Transmission Date: 20120608
  Serious: Yes (Hospitalization)
  Sender: FDA-Public Use
  Company Number: PHHY2012KR002478

PATIENT
  Age: 38 Year
  Sex: Female

DRUGS (2)
  1. FLUOROURACIL [Suspect]
     Dosage: 1000 MG/M2, UNK
     Route: 042
  2. CISPLATIN [Suspect]
     Dosage: 60 MG/M2, UNK
     Route: 042

REACTIONS (15)
  - LETHARGY [None]
  - DYSARTHRIA [None]
  - ENCEPHALOPATHY [None]
  - SOMNOLENCE [None]
  - THROMBOCYTOPENIA [None]
  - ASTHENIA [None]
  - DECREASED APPETITE [None]
  - STOMATITIS [None]
  - MENTAL STATUS CHANGES [None]
  - INSOMNIA [None]
  - NEUTROPENIA [None]
  - CONFUSIONAL STATE [None]
  - PARANOIA [None]
  - VOMITING [None]
  - DIARRHOEA [None]
